FAERS Safety Report 7265842-6 (Version None)
Quarter: 2011Q1

REPORT INFORMATION
  Report Type: 
  Country: None (occurrence: None)
  Receive Date: 20110131
  Receipt Date: 20110126
  Transmission Date: 20110831
  Serious: Yes (Hospitalization)
  Sender: FDA-Public Use
  Company Number: A0909472A

PATIENT
  Age: 42 Year
  Sex: Female

DRUGS (10)
  1. CELEXA [Concomitant]
  2. ROPINIROLE [Suspect]
     Indication: PARKINSON'S DISEASE
     Dosage: .4MG PER DAY
     Route: 048
     Dates: start: 20110101
  3. ATENOLOL [Concomitant]
  4. ANTIDEPRESSANTS [Concomitant]
  5. TRAZODONE HCL [Concomitant]
  6. MIRTAZAPINE [Concomitant]
  7. REQUIP [Suspect]
     Indication: RESTLESS LEGS SYNDROME
     Dosage: 2MG PER DAY
     Route: 048
     Dates: start: 19990101
  8. ZOLOFT [Concomitant]
  9. NEURONTIN [Concomitant]
  10. XANAX [Concomitant]

REACTIONS (16)
  - CEREBROVASCULAR ACCIDENT [None]
  - CHEST DISCOMFORT [None]
  - HEADACHE [None]
  - NECK PAIN [None]
  - HYPOTENSION [None]
  - HYPOAESTHESIA [None]
  - HORMONE LEVEL ABNORMAL [None]
  - PARAESTHESIA [None]
  - VOMITING [None]
  - SUICIDAL IDEATION [None]
  - NAUSEA [None]
  - CONDITION AGGRAVATED [None]
  - INSOMNIA [None]
  - PALPITATIONS [None]
  - HYPERTENSION [None]
  - HEMIPARESIS [None]
